FAERS Safety Report 25330313 (Version 2)
Quarter: 2025Q2

REPORT INFORMATION
  Report Type: Spontaneous
  Country: US (occurrence: US)
  Receive Date: 20250519
  Receipt Date: 20250521
  Transmission Date: 20250716
  Serious: Yes (Other)
  Sender: BAYER HEALTHCARE LLC
  Company Number: US-BAYER-2025A066706

PATIENT
  Age: 41 Year
  Sex: Female

DRUGS (1)
  1. ASPIRIN [Suspect]
     Active Substance: ASPIRIN
     Indication: Pregnancy

REACTIONS (5)
  - Duodenal ulcer perforation [None]
  - Product use in unapproved indication [None]
  - Product prescribing issue [None]
  - Maternal exposure during pregnancy [None]
  - Contraindicated product administered [None]
